FAERS Safety Report 5888282-0 (Version None)
Quarter: 2008Q3

REPORT INFORMATION
  Report Type: 
  Country: None (occurrence: None)
  Receive Date: 20080918
  Receipt Date: 20050929
  Transmission Date: 20090109
  Serious: Yes (Hospitalization)
  Sender: FDA-Public Use
  Company Number: IT-ROCHE-572496

PATIENT
  Sex: Male
  Weight: 85 kg

DRUGS (2)
  1. PEGASYS [Suspect]
     Route: 065
     Dates: start: 20040208, end: 20040330
  2. REBETOL [Suspect]
     Route: 065
     Dates: start: 20040208, end: 20040330

REACTIONS (2)
  - CARDIOPULMONARY FAILURE [None]
  - VENTRICULAR TACHYCARDIA [None]
